FAERS Safety Report 4384483-1 (Version None)
Quarter: 2004Q2

REPORT INFORMATION
  Report Type: 
  Country: None (occurrence: None)
  Receive Date: 20040624
  Receipt Date: 20030929
  Transmission Date: 20050107
  Serious: Yes (Hospitalization)
  Sender: FDA-Public Use
  Company Number: US-MERCK-0310USA00140

PATIENT
  Age: 43 Year
  Sex: Female
  Weight: 58 kg

DRUGS (4)
  1. [THERAPY UNSPECIFIED] [Concomitant]
     Route: 065
  2. PERCOCET [Concomitant]
     Indication: PAIN
     Route: 065
  3. VIOXX [Suspect]
     Indication: PAIN
     Route: 048
     Dates: start: 20020101
  4. VIOXX [Suspect]
     Indication: ARTHRITIS
     Route: 048
     Dates: start: 20020101

REACTIONS (6)
  - ABDOMINAL PAIN UPPER [None]
  - ARTHROPATHY [None]
  - BLOOD PRESSURE INCREASED [None]
  - EMOTIONAL DISTRESS [None]
  - HEADACHE [None]
  - PAIN [None]
